FAERS Safety Report 8348352-4 (Version None)
Quarter: 2012Q2

REPORT INFORMATION
  Report Type: 
  Country: None (occurrence: None)
  Receive Date: 20120509
  Receipt Date: 20120507
  Transmission Date: 20120825
  Serious: Yes (Death, Hospitalization)
  Sender: FDA-Public Use
  Company Number: ES-ROCHE-1037165

PATIENT
  Sex: Male
  Weight: 68 kg

DRUGS (2)
  1. VEMURAFENIB [Suspect]
     Indication: METASTATIC MALIGNANT MELANOMA
     Route: 048
     Dates: start: 20110922, end: 20120131
  2. OMEPRAZOLE [Concomitant]
     Dates: start: 20110922

REACTIONS (1)
  - SEPSIS [None]
